FAERS Safety Report 10788688 (Version 1)
Quarter: 2015Q1

REPORT INFORMATION
  Report Type: Report from Study
  Country: GB (occurrence: None)
  Receive Date: 20150210
  Receipt Date: 20150210
  Transmission Date: 20150721
  Serious: Yes (Life-Threatening)
  Sender: FDA-Public Use
  Company Number: GBR-CLT-2009008

PATIENT
  Age: 3 Year
  Sex: Male

DRUGS (15)
  1. MIDAZOLAM [Concomitant]
     Active Substance: MIDAZOLAM\MIDAZOLAM HYDROCHLORIDE
  2. CEFOTAXIME [Concomitant]
     Active Substance: CEFOTAXIME\CEFOTAXIME SODIUM
  3. SODIUM BENZOATE [Concomitant]
     Active Substance: SODIUM BENZOATE
  4. LEVOTHYROXINE [Concomitant]
     Active Substance: LEVOTHYROXINE
  5. RANITIDINE [Concomitant]
     Active Substance: RANITIDINE\RANITIDINE HYDROCHLORIDE
  6. CARBAGLU [Suspect]
     Active Substance: CARGLUMIC ACID
     Indication: ACIDOSIS
     Route: 048
     Dates: start: 20090802, end: 20090802
  7. SODIUM BICARBONATE. [Concomitant]
     Active Substance: SODIUM BICARBONATE
  8. SODIUM PHENYLBUTYRATE. [Concomitant]
     Active Substance: SODIUM PHENYLBUTYRATE
  9. NYSTATIN. [Concomitant]
     Active Substance: NYSTATIN
  10. MORPHINE [Concomitant]
     Active Substance: MORPHINE
  11. METRONIDAZOLE. [Concomitant]
     Active Substance: METRONIDAZOLE
  12. PARACETAMOL [Concomitant]
     Active Substance: ACETAMINOPHEN
  13. INSULIN [Concomitant]
     Active Substance: INSULIN NOS
  14. DOMPERIDONE [Concomitant]
     Active Substance: DOMPERIDONE
  15. L-CARNITINE [Concomitant]
     Active Substance: CARNITINE

REACTIONS (8)
  - Respiratory failure [None]
  - Acidosis [None]
  - Sepsis [None]
  - Condition aggravated [None]
  - Hyponatraemia [None]
  - Pyrexia [None]
  - Encephalopathy [None]
  - Constipation [None]

NARRATIVE: CASE EVENT DATE: 20091017
